FAERS Safety Report 26047136 (Version 1)
Quarter: 2025Q4

REPORT INFORMATION
  Report Type: Spontaneous
  Country: US (occurrence: US)
  Receive Date: 20251114
  Receipt Date: 20251114
  Transmission Date: 20260118
  Serious: Yes (Death, Other)
  Sender: VELOXIS PHARMACEUTICALS
  Company Number: US-VELOXIS PHARMACEUTICALS, INC.-2025-VEL-04244

PATIENT

DRUGS (3)
  1. ENVARSUS XR [Suspect]
     Active Substance: TACROLIMUS
     Indication: Renal transplant
     Dosage: UNK, TARGET TROUGH OF 6?10 NG/ML FOR FIRST 6 MONTHS POST-TRANSPLANT
  2. MYCOPHENOLATE MOFETIL [Suspect]
     Active Substance: MYCOPHENOLATE MOFETIL
     Indication: Renal transplant
     Dosage: 750?1000 MG, BID
  3. PREDNISONE [Suspect]
     Active Substance: PREDNISONE
     Indication: Renal transplant
     Dosage: TAPERED TO 10 MG BY POST-OPERATIVE, DAY4

REACTIONS (3)
  - Death [Fatal]
  - Transplant rejection [Unknown]
  - Donor specific antibody present [Unknown]
